FAERS Safety Report 7249632-6 (Version None)
Quarter: 2011Q1

REPORT INFORMATION
  Report Type: 
  Country: None (occurrence: None)
  Receive Date: 20110128
  Receipt Date: 20101130
  Transmission Date: 20110831
  Serious: Yes (Hospitalization, Other)
  Sender: FDA-Public Use
  Company Number: US-BAYER-201022566NA

PATIENT
  Sex: Female
  Weight: 100.68 kg

DRUGS (4)
  1. POTASSIUM [POTASSIUM] [Concomitant]
     Dosage: UNK
     Dates: start: 20100301
  2. NSAID'S [Concomitant]
  3. YASMIN [Suspect]
     Indication: PREMENSTRUAL SYNDROME
     Dosage: UNK
     Dates: start: 20060101
  4. YASMIN [Suspect]
     Dosage: UNK
     Dates: start: 20040901, end: 20050101

REACTIONS (3)
  - DEEP VEIN THROMBOSIS [None]
  - OEDEMA PERIPHERAL [None]
  - PAIN IN EXTREMITY [None]
